FAERS Safety Report 22171292 (Version 3)
Quarter: 2023Q2

REPORT INFORMATION
  Report Type: Spontaneous
  Country: JP (occurrence: JP)
  Receive Date: 20230404
  Receipt Date: 20230425
  Transmission Date: 20230722
  Serious: Yes (Other)
  Sender: FDA-Public Use
  Company Number: JP-002147023-NVSJ2023JP005488

PATIENT
  Age: 12 Year
  Sex: Female
  Weight: 44.7 kg

DRUGS (9)
  1. CYCLOSPORINE [Suspect]
     Active Substance: CYCLOSPORINE
     Indication: Castleman^s disease
     Dosage: 3 MG/KG, 24 HOUR CONTINUOUS INFUSION
     Route: 042
     Dates: start: 20220203, end: 20220218
  2. PREDNISOLONE [Suspect]
     Active Substance: PREDNISOLONE
     Indication: Castleman^s disease
     Dosage: 60 MG
     Route: 042
     Dates: start: 20220127
  3. PREDNISOLONE [Suspect]
     Active Substance: PREDNISOLONE
     Dosage: 45 MG
     Route: 042
     Dates: start: 20220303
  4. PREDNISOLONE [Suspect]
     Active Substance: PREDNISOLONE
     Dosage: 60 MG
     Route: 042
  5. PREDNISOLONE [Suspect]
     Active Substance: PREDNISOLONE
     Dosage: TAPERED
     Route: 048
     Dates: end: 20220714
  6. TOCILIZUMAB [Concomitant]
     Active Substance: TOCILIZUMAB
     Indication: Castleman^s disease
     Dosage: 8 MG/KG, QW
     Route: 042
     Dates: start: 20220213
  7. TOCILIZUMAB [Concomitant]
     Active Substance: TOCILIZUMAB
     Dosage: 162 MG, QW
     Route: 058
     Dates: start: 20220610
  8. SOLU-CORTEF [Concomitant]
     Active Substance: HYDROCORTISONE SODIUM SUCCINATE
     Indication: Product used for unknown indication
     Dosage: 100 MG, INFUSION 30 MIN PRIOR TO ACTEMRA
     Route: 041
     Dates: start: 20220213
  9. ATARAX [Concomitant]
     Active Substance: HYDROXYZINE HYDROCHLORIDE
     Indication: Product used for unknown indication
     Dosage: 25 MG, INFUSION 30 MIN PRIOR TO ACTEMRA
     Route: 041
     Dates: start: 20220213

REACTIONS (7)
  - Castleman^s disease [Recovering/Resolving]
  - Condition aggravated [Recovering/Resolving]
  - Pyrexia [Unknown]
  - Product use in unapproved indication [Unknown]
  - Blood creatinine increased [Unknown]
  - Off label use [Unknown]
  - Drug ineffective [Unknown]
